FAERS Safety Report 6557437-4 (Version None)
Quarter: 2010Q1

REPORT INFORMATION
  Report Type: 
  Country: None (occurrence: None)
  Receive Date: 20100127
  Receipt Date: 20100127
  Transmission Date: 20100710
  Serious: Yes (Other)
  Sender: FDA-Public Use
  Company Number: None

PATIENT
  Age: 51 Year
  Sex: Male
  Weight: 108.8633 kg

DRUGS (1)
  1. CELEBREX [Suspect]
     Indication: TEMPOROMANDIBULAR JOINT SYNDROME
     Dosage: 200MG ONE TIME DAILY PO
     Route: 048
     Dates: start: 20100126, end: 20100126

REACTIONS (4)
  - BURNING SENSATION [None]
  - DRUG HYPERSENSITIVITY [None]
  - ERYTHEMA [None]
  - PARAESTHESIA [None]
